FAERS Safety Report 4865617-9 (Version None)
Quarter: 2005Q4

REPORT INFORMATION
  Report Type: 
  Country: None (occurrence: None)
  Receive Date: 20051220
  Receipt Date: 20051207
  Transmission Date: 20060501
  Serious: Yes (Death, Life-Threatening, Hospitalization, Other)
  Sender: FDA-Public Use
  Company Number: 2005166836

PATIENT
  Age: 57 Year
  Sex: Female
  Weight: 54.4316 kg

DRUGS (9)
  1. NEURONTIN [Suspect]
     Indication: NEURALGIA
     Dosage: 600 MG, ORAL
     Route: 048
     Dates: end: 20051203
  2. PREDNISONE [Suspect]
     Indication: POLYMYALGIA RHEUMATICA
  3. ACCUPRIL [Concomitant]
  4. ZOLOFT [Concomitant]
  5. XANAX [Concomitant]
  6. REGLAN [Concomitant]
  7. ACIPHEX [Concomitant]
  8. NPH INSULIN [Concomitant]
  9. INSULIN, REGULAR (INSULIN) [Concomitant]

REACTIONS (19)
  - ARTHRALGIA [None]
  - BLOOD GLUCOSE ABNORMAL [None]
  - BLOOD GLUCOSE INCREASED [None]
  - CAROTID ARTERY OCCLUSION [None]
  - CONDITION AGGRAVATED [None]
  - CONFUSIONAL STATE [None]
  - DECREASED ACTIVITY [None]
  - DISORIENTATION [None]
  - DRUG EFFECT DECREASED [None]
  - FALL [None]
  - HYPOAESTHESIA [None]
  - NEUROPATHY [None]
  - PAIN IN EXTREMITY [None]
  - POLYMYALGIA RHEUMATICA [None]
  - RESPIRATORY ARREST [None]
  - SKIN LESION [None]
  - SPEECH DISORDER [None]
  - VOMITING [None]
  - WEIGHT DECREASED [None]
